FAERS Safety Report 14576381 (Version 2)
Quarter: 2018Q1

REPORT INFORMATION
  Report Type: Spontaneous
  Country: US (occurrence: US)
  Receive Date: 20180227
  Receipt Date: 20180302
  Transmission Date: 20180509
  Serious: Yes (Hospitalization)
  Sender: FDA-Public Use
  Company Number: US-CELGENEUS-USA-20180208244

PATIENT
  Sex: Male

DRUGS (11)
  1. DILAUDID [Concomitant]
     Active Substance: HYDROMORPHONE HYDROCHLORIDE
     Indication: PYODERMA GANGRENOSUM
     Dosage: 6 MILLIGRAM
     Route: 048
     Dates: start: 20170420, end: 20180212
  2. VALIUM [Concomitant]
     Active Substance: DIAZEPAM
     Indication: ANAEMIA
  3. OSCAL D [Concomitant]
     Active Substance: CALCIUM CARBONATE\CHOLECALCIFEROL
     Indication: PYODERMA GANGRENOSUM
     Dosage: 500 MILLIGRAM
     Route: 048
     Dates: start: 20170116
  4. VALIUM [Concomitant]
     Active Substance: DIAZEPAM
     Indication: INSOMNIA
  5. THALOMID [Suspect]
     Active Substance: THALIDOMIDE
     Indication: PYODERMA GANGRENOSUM
     Dosage: 50 MILLIGRAM
     Route: 048
     Dates: start: 20180123
  6. VALIUM [Concomitant]
     Active Substance: DIAZEPAM
     Indication: PYODERMA GANGRENOSUM
     Dosage: 10 MILLIGRAM
     Route: 048
     Dates: start: 20170718
  7. METOPROLOL. [Concomitant]
     Active Substance: METOPROLOL
     Indication: CORONARY ARTERY DISEASE
     Dosage: 25 MILLIGRAM
     Route: 048
     Dates: start: 20170906
  8. FERROUS SULFATE. [Concomitant]
     Active Substance: FERROUS SULFATE
     Indication: PRODUCT USED FOR UNKNOWN INDICATION
     Dosage: 325 MILLIGRAM
     Route: 048
  9. LIDOCAINE. [Concomitant]
     Active Substance: LIDOCAINE
     Indication: PYODERMA GANGRENOSUM
     Route: 061
     Dates: start: 20171116
  10. THALOMID [Suspect]
     Active Substance: THALIDOMIDE
     Indication: BEHCET^S SYNDROME
     Dosage: 50 MILLIGRAM
     Route: 048
     Dates: start: 20180111
  11. DIOVAN [Concomitant]
     Active Substance: VALSARTAN
     Indication: ESSENTIAL HYPERTENSION
     Dosage: 160 MILLIGRAM
     Route: 048

REACTIONS (1)
  - Intestinal obstruction [Recovered/Resolved]
